FAERS Safety Report 4972042-9 (Version None)
Quarter: 2006Q2

REPORT INFORMATION
  Report Type: 
  Country: None (occurrence: None)
  Receive Date: 20060412
  Receipt Date: 20060412
  Transmission Date: 20061013
  Serious: No
  Sender: FDA-Public Use
  Company Number: None

PATIENT
  Sex: Female

DRUGS (1)
  1. TIAZAC [Suspect]
     Indication: HYPERTENSION
     Dates: start: 20040101

REACTIONS (2)
  - NAUSEA [None]
  - VOMITING [None]
